FAERS Safety Report 6338540-0 (Version None)
Quarter: 2009Q3

REPORT INFORMATION
  Report Type: 
  Country: None (occurrence: None)
  Receive Date: 20090901
  Receipt Date: 20090821
  Transmission Date: 20100115
  Serious: Yes (Other)
  Sender: FDA-Public Use
  Company Number: ENT2009-0114

PATIENT
  Age: 70 Year
  Sex: Male

DRUGS (4)
  1. COMTAN [Suspect]
     Indication: PARKINSON'S DISEASE
     Dosage: 800 MG (200 MG,4 IN 1 D)
     Dates: start: 20080701
  2. AMANTADINE HCL [Suspect]
     Indication: PARKINSON'S DISEASE
     Dosage: 200 MG (100 MG,2 IN 1 D)
     Dates: start: 20080701
  3. PRAMIPEXOLE DIHYDROCHLORIDE [Suspect]
     Indication: PARKINSON'S DISEASE
     Dosage: 4 MG (1 MG,4 IN 1 D)
     Dates: start: 20080701
  4. PROLOPA [Suspect]
     Indication: PARKINSON'S DISEASE
     Dosage: 4 CAPSULES DAILY;  250 MG 4.5 TABLETS DAILY
     Dates: start: 20080701

REACTIONS (4)
  - ARTHROPOD BITE [None]
  - DERMATITIS PSORIASIFORM [None]
  - DRUG HYPERSENSITIVITY [None]
  - EOSINOPHILIC CELLULITIS [None]
